FAERS Safety Report 16374104 (Version 1)
Quarter: 2019Q2

REPORT INFORMATION
  Report Type: Spontaneous
  Country: IN (occurrence: IN)
  Receive Date: 20190530
  Receipt Date: 20190530
  Transmission Date: 20190711
  Serious: Yes (Other)
  Sender: FDA-Public Use
  Company Number: IN-009507513-1905IND012669

PATIENT
  Age: 36 Year
  Sex: Female
  Weight: 64.2 kg

DRUGS (20)
  1. IMIPENEM AND CILASTATIN [Suspect]
     Active Substance: CILASTATIN SODIUM\IMIPENEM
     Indication: LYMPH NODE TUBERCULOSIS
     Dosage: 1 GRAM, QD
     Route: 042
     Dates: start: 20190111, end: 20190426
  2. DELAMANID [Suspect]
     Active Substance: DELAMANID
     Indication: EXTRAPULMONARY TUBERCULOSIS
     Dosage: 200 MILLIGRAM, QD
     Route: 048
     Dates: start: 2019
  3. PREGABALIN. [Concomitant]
     Active Substance: PREGABALIN
     Indication: PROPHYLAXIS
     Dosage: UNK
     Dates: start: 20190111, end: 20190426
  4. ONDANSETRON [Concomitant]
     Active Substance: ONDANSETRON
     Dosage: UNK
     Dates: start: 2019, end: 20190426
  5. CLOFAZIMINE [Suspect]
     Active Substance: CLOFAZIMINE
     Indication: LYMPH NODE TUBERCULOSIS
     Dosage: 100 MILLIGRAM, QD
     Route: 065
     Dates: start: 20190111, end: 20190417
  6. OMEPRAZOLE. [Concomitant]
     Active Substance: OMEPRAZOLE
     Indication: ANTACID THERAPY
     Dosage: UNK
     Dates: start: 20190111, end: 20190426
  7. AMOXICILLIN (+) CLAVULANATE POTASSIUM [Suspect]
     Active Substance: AMOXICILLIN\CLAVULANATE POTASSIUM
     Indication: EXTRAPULMONARY TUBERCULOSIS
     Dosage: 625 MILLIGRAM, QD
     Route: 048
     Dates: start: 2019
  8. MOXIFLOXACIN. [Suspect]
     Active Substance: MOXIFLOXACIN
     Indication: LYMPH NODE TUBERCULOSIS
     Dosage: 600 MILLIGRAM, QD (HIGH DOSE)
     Route: 048
     Dates: start: 20190111, end: 20190417
  9. IMIPENEM AND CILASTATIN [Suspect]
     Active Substance: CILASTATIN SODIUM\IMIPENEM
     Indication: EXTRAPULMONARY TUBERCULOSIS
     Dosage: 1 GRAM, QD
     Route: 042
     Dates: start: 2019
  10. AMOXICILLIN (+) CLAVULANATE POTASSIUM [Suspect]
     Active Substance: AMOXICILLIN\CLAVULANATE POTASSIUM
     Indication: LYMPH NODE TUBERCULOSIS
     Dosage: 625 MILLIGRAM, QD
     Route: 048
     Dates: start: 20190111, end: 20190426
  11. CLOFAZIMINE [Suspect]
     Active Substance: CLOFAZIMINE
     Indication: EXTRAPULMONARY TUBERCULOSIS
  12. METOCLOPRAMIDE. [Concomitant]
     Active Substance: METOCLOPRAMIDE
     Indication: VOMITING
     Dosage: UNK
     Dates: start: 20190111, end: 20190426
  13. ONDANSETRON [Concomitant]
     Active Substance: ONDANSETRON
     Indication: VOMITING
     Dosage: UNK
     Dates: start: 20190111, end: 2019
  14. MOXIFLOXACIN. [Suspect]
     Active Substance: MOXIFLOXACIN
     Indication: EXTRAPULMONARY TUBERCULOSIS
     Dosage: 600 MILLIGRAM, QD (HIGH DOSE)
     Route: 048
     Dates: start: 20190423, end: 20190426
  15. FERROUS SULFATE (+) FOLIC ACID [Concomitant]
     Indication: MINERAL SUPPLEMENTATION
     Dosage: UNK
     Dates: end: 20190426
  16. DELAMANID [Suspect]
     Active Substance: DELAMANID
     Indication: LYMPH NODE TUBERCULOSIS
     Dosage: 200 MILLIGRAM, QD
     Route: 048
     Dates: start: 20190111, end: 20190426
  17. BEDAQUILINE [Suspect]
     Active Substance: BEDAQUILINE
     Indication: LYMPH NODE TUBERCULOSIS
     Dosage: 200 MILLIGRAM, TIW
     Route: 048
     Dates: start: 20190111, end: 20190426
  18. BEDAQUILINE [Suspect]
     Active Substance: BEDAQUILINE
     Indication: EXTRAPULMONARY TUBERCULOSIS
     Dosage: 200 MILLIGRAM, TIW
     Route: 048
     Dates: start: 2019
  19. THYROXIN [Concomitant]
     Active Substance: LEVOTHYROXINE
     Indication: HYPOTHYROIDISM
     Dosage: UNK
     Dates: start: 20190111
  20. PYRIDOXINE [Concomitant]
     Active Substance: PYRIDOXINE
     Indication: PROPHYLAXIS
     Dosage: UNK
     Dates: start: 20190111, end: 20190426

REACTIONS (8)
  - Electrocardiogram QT prolonged [Recovered/Resolved]
  - Palpitations [Unknown]
  - Lymph node calcification [Unknown]
  - Blood potassium decreased [Unknown]
  - Dizziness [Unknown]
  - Somnolence [Unknown]
  - Blood magnesium decreased [Unknown]
  - Product use in unapproved indication [Unknown]

NARRATIVE: CASE EVENT DATE: 20190111
